FAERS Safety Report 5304649-3 (Version None)
Quarter: 2007Q2

REPORT INFORMATION
  Report Type: 
  Country: None (occurrence: None)
  Receive Date: 20070416
  Receipt Date: 20070410
  Transmission Date: 20071010
  Serious: Yes (Life-Threatening, Other)
  Sender: FDA-Public Use
  Company Number: E2020-01015-SPO-JP

PATIENT
  Age: 78 Year
  Sex: Male
  Weight: 61 kg

DRUGS (15)
  1. ARICEPT [Suspect]
     Indication: CEREBRAL HAEMORRHAGE
     Dosage: 5 MG, 1 IN 1 D, ORAL
     Route: 048
     Dates: start: 20060410, end: 20060731
  2. ARICEPT [Suspect]
     Indication: VASCULAR DEMENTIA
     Dosage: 5 MG, 1 IN 1 D, ORAL
     Route: 048
     Dates: start: 20060410, end: 20060731
  3. ARICEPT [Suspect]
     Indication: CEREBRAL HAEMORRHAGE
     Dosage: 5 MG, 1 IN 1 D, ORAL
     Route: 048
     Dates: start: 20060821, end: 20061030
  4. ARICEPT [Suspect]
     Indication: VASCULAR DEMENTIA
     Dosage: 5 MG, 1 IN 1 D, ORAL
     Route: 048
     Dates: start: 20060821, end: 20061030
  5. RIZE (CLOTIAZEPAM) [Concomitant]
  6. BLOPRESS (CANDESARTAN CILEXETIL) [Concomitant]
  7. NORVASC [Concomitant]
  8. DEPAKENE [Concomitant]
  9. BUP-4 (PROPIVERINE HYDROCHLORIDE) [Concomitant]
  10. GRAMALIL (TIAPRIDE HYDROCHLORIDE) [Concomitant]
  11. LENDORM [Concomitant]
  12. EURAX [Concomitant]
  13. LULICON CREAM (LULICONAZOLE) [Concomitant]
  14. MAGNESIUM OXIDE (MAGNESIUM OXIDE) [Concomitant]
  15. HALOPERIDOL [Concomitant]

REACTIONS (10)
  - ARRHYTHMIA [None]
  - CARDIO-RESPIRATORY ARREST [None]
  - CEREBRAL HAEMORRHAGE [None]
  - CONVULSION [None]
  - DELIRIUM [None]
  - DRUG INTERACTION [None]
  - RESTLESSNESS [None]
  - SOMNOLENCE [None]
  - SYNCOPE [None]
  - VENTRICULAR EXTRASYSTOLES [None]
